FAERS Safety Report 11062399 (Version 3)
Quarter: 2015Q2

REPORT INFORMATION
  Report Type: Spontaneous
  Country: US (occurrence: US)
  Receive Date: 20150424
  Receipt Date: 20150612
  Transmission Date: 20150821
  Serious: Yes (Other)
  Sender: FDA-Public Use
  Company Number: US-SA-2015SA052374

PATIENT
  Age: 59 Year
  Sex: Female
  Weight: 86.1 kg

DRUGS (11)
  1. METOPROLOL [Concomitant]
     Active Substance: METOPROLOL
     Indication: STENT PLACEMENT
     Dates: start: 20130117
  2. LISINOPRIL. [Concomitant]
     Active Substance: LISINOPRIL
     Indication: BLOOD PRESSURE
     Dates: start: 2007
  3. FISH OIL [Concomitant]
     Active Substance: FISH OIL
     Dates: start: 20130117
  4. SOLOSTAR [Concomitant]
     Active Substance: DEVICE
     Dates: start: 201311
  5. AMBIEN [Concomitant]
     Active Substance: ZOLPIDEM TARTRATE
     Indication: SLEEP DISORDER
  6. LANTUS SOLOSTAR [Suspect]
     Active Substance: INSULIN GLARGINE
     Indication: TYPE 2 DIABETES MELLITUS
     Dosage: DOSE:68 UNIT(S)
     Route: 065
     Dates: start: 201311
  7. METOPROLOL [Concomitant]
     Active Substance: METOPROLOL
     Indication: BLOOD PRESSURE
     Dates: start: 20130117
  8. METFORMIN [Concomitant]
     Active Substance: METFORMIN HYDROCHLORIDE
     Indication: DIABETES MELLITUS
     Dates: start: 2007
  9. AMBIEN [Concomitant]
     Active Substance: ZOLPIDEM TARTRATE
     Indication: PAIN IN EXTREMITY
  10. LANTUS SOLOSTAR [Suspect]
     Active Substance: INSULIN GLARGINE
     Indication: TYPE 2 DIABETES MELLITUS
     Dosage: DOSE:75 UNIT(S)
     Route: 065
  11. MAGNESIUM [Concomitant]
     Active Substance: MAGNESIUM
     Indication: NERVOUS SYSTEM DISORDER
     Dates: start: 201502

REACTIONS (3)
  - Umbilical hernia repair [Unknown]
  - Incorrect dose administered [Unknown]
  - Blood glucose abnormal [Unknown]
